FAERS Safety Report 5405616-1 (Version None)
Quarter: 2007Q3

REPORT INFORMATION
  Report Type: 
  Country: None (occurrence: None)
  Receive Date: 20070806
  Receipt Date: 20070730
  Transmission Date: 20080115
  Serious: Yes (Hospitalization)
  Sender: FDA-Public Use
  Company Number: PHRM2007FR01842

PATIENT
  Age: 77 Year
  Sex: Male

DRUGS (7)
  1. KEPPRA [Concomitant]
     Indication: EPILEPSY
     Dosage: 500 MG, QD
     Route: 048
     Dates: start: 20070425, end: 20070622
  2. KEPPRA [Concomitant]
     Dosage: 1000 MG/DAY
     Route: 048
     Dates: start: 20070623
  3. IRBESARTAN [Concomitant]
     Route: 048
  4. CORDARONE [Concomitant]
     Route: 048
  5. IPERTEN [Concomitant]
     Route: 048
  6. DOSTINEX [Concomitant]
     Dosage: 1 DF, QW
     Route: 048
     Dates: start: 20070601
  7. TRILEPTAL [Suspect]
     Indication: EPILEPSY
     Dosage: 300 MG, BID
     Route: 048
     Dates: start: 20070320, end: 20070623

REACTIONS (12)
  - ALANINE AMINOTRANSFERASE INCREASED [None]
  - ASPARTATE AMINOTRANSFERASE INCREASED [None]
  - ASTHENIA [None]
  - BLOOD ALKALINE PHOSPHATASE INCREASED [None]
  - CHOLESTASIS [None]
  - DIZZINESS [None]
  - EPILEPSY [None]
  - GAMMA-GLUTAMYLTRANSFERASE INCREASED [None]
  - HEPATITIS [None]
  - MENINGIOMA SURGERY [None]
  - PITUITARY TUMOUR BENIGN [None]
  - TRANSAMINASES INCREASED [None]
